FAERS Safety Report 23912607 (Version 1)
Quarter: 2024Q2

REPORT INFORMATION
  Report Type: Spontaneous
  Country: CH (occurrence: CH)
  Receive Date: 20240528
  Receipt Date: 20240528
  Transmission Date: 20240716
  Serious: Yes (Other)
  Sender: FDA-Public Use
  Company Number: CH-ABBVIE-5733633

PATIENT
  Age: 24 Year
  Sex: Male
  Weight: 68 kg

DRUGS (3)
  1. RINVOQ [Suspect]
     Active Substance: UPADACITINIB
     Indication: Crohn^s disease
     Dosage: LAST ADMIN DATE 2024
     Route: 048
     Dates: start: 20240419
  2. RINVOQ [Suspect]
     Active Substance: UPADACITINIB
     Indication: Crohn^s disease
     Route: 048
  3. CALCIUM [Concomitant]
     Active Substance: CALCIUM
     Indication: Product used for unknown indication
     Dosage: FREQUENCY TEXT: DURING STEROIDS?LAST ADMIN DATE-2024
     Route: 048
     Dates: start: 20240404

REACTIONS (34)
  - Ileostomy [Unknown]
  - Off label use [Not Recovered/Not Resolved]
  - Proctalgia [Recovered/Resolved]
  - Platelet count increased [Unknown]
  - C-reactive protein increased [Recovered/Resolved]
  - Eosinophil count decreased [Recovered/Resolved]
  - C-reactive protein increased [Recovered/Resolved]
  - Blood iron decreased [Unknown]
  - Blood glucose increased [Unknown]
  - Intestinal mass [Unknown]
  - Colostomy [Unknown]
  - Fistula discharge [Not Recovered/Not Resolved]
  - Intestinal mass [Recovered/Resolved]
  - Lymphocyte count decreased [Recovered/Resolved]
  - Neutrophil count increased [Recovered/Resolved]
  - Neutrophil count increased [Unknown]
  - Lymphocyte count decreased [Unknown]
  - Anal fistula [Recovered/Resolved]
  - Ileal stenosis [Unknown]
  - White blood cell count increased [Recovered/Resolved]
  - Transferrin saturation decreased [Unknown]
  - Erythema nodosum [Unknown]
  - Blood phosphorus decreased [Unknown]
  - Lymphocyte count decreased [Recovered/Resolved]
  - Proctalgia [Unknown]
  - Alanine aminotransferase increased [Unknown]
  - Blood triglycerides increased [Unknown]
  - Eosinophil count decreased [Unknown]
  - White blood cell count increased [Unknown]
  - C-reactive protein increased [Recovered/Resolved]
  - Anal fistula [Recovered/Resolved]
  - Secretion discharge [Unknown]
  - Anal haemorrhage [Recovered/Resolved]
  - Purulent discharge [Recovered/Resolved]

NARRATIVE: CASE EVENT DATE: 20240122
